FAERS Safety Report 14063597 (Version 4)
Quarter: 2018Q3

REPORT INFORMATION
  Report Type: Spontaneous
  Country: US (occurrence: US)
  Receive Date: 20171009
  Receipt Date: 20180927
  Transmission Date: 20181010
  Serious: Yes (Other)
  Sender: FDA-Public Use
  Company Number: US-GLAXOSMITHKLINE-US2017GSK153632

PATIENT
  Age: 55 Year
  Sex: Male

DRUGS (1)
  1. ADVAIR DISKUS [Suspect]
     Active Substance: FLUTICASONE PROPIONATE\SALMETEROL XINAFOATE
     Indication: ASTHMA
     Dosage: UNK
     Dates: start: 2016

REACTIONS (8)
  - Lung carcinoma cell type unspecified stage III [Unknown]
  - Chemotherapy [Unknown]
  - Cough [Unknown]
  - Asthma [Unknown]
  - Drug ineffective [Unknown]
  - Neoplasm malignant [Unknown]
  - Radiotherapy [Unknown]
  - Pulmonary fibrosis [Unknown]

NARRATIVE: CASE EVENT DATE: 201602
